FAERS Safety Report 22303609 (Version 1)
Quarter: 2023Q2

REPORT INFORMATION
  Report Type: Spontaneous
  Country: US (occurrence: None)
  Receive Date: 20230509
  Receipt Date: 20230509
  Transmission Date: 20230721
  Serious: No
  Sender: FDA-Public Use
  Company Number: None

PATIENT
  Age: 78 Year
  Sex: Male
  Weight: 80.74 kg

DRUGS (33)
  1. CYCLOPHOSPHAMIDE [Suspect]
     Active Substance: CYCLOPHOSPHAMIDE
     Indication: Plasma cell myeloma
     Dosage: FREQUENCY : WEEKLY;?
     Route: 048
     Dates: start: 202211
  2. ACYCLOVIR [Concomitant]
     Active Substance: ACYCLOVIR
  3. ASPIRIN [Concomitant]
     Active Substance: ASPIRIN
  4. BACTRIM DS [Concomitant]
     Active Substance: SULFAMETHOXAZOLE\TRIMETHOPRIM
  5. BORTEZOMIB [Concomitant]
     Active Substance: BORTEZOMIB
  6. COLLAGEN [Concomitant]
     Active Substance: COLLAGEN
  7. DEXAMETHASONE [Concomitant]
     Active Substance: DEXAMETHASONE
  8. DIPHENHYDRAMINE [Concomitant]
     Active Substance: DIPHENHYDRAMINE
  9. FIBER [Concomitant]
  10. FUROSEMIDE [Concomitant]
     Active Substance: FUROSEMIDE
  11. GABAPENTIN [Concomitant]
  12. HEPARIN [Concomitant]
  13. INSULIN LISPRO [Concomitant]
     Active Substance: INSULIN LISPRO
  14. IODINE [Concomitant]
     Active Substance: IODINE
  15. LENALIDOMIDE [Concomitant]
     Active Substance: LENALIDOMIDE
  16. METHYLPREDNISOLONE [Concomitant]
     Active Substance: METHYLPREDNISOLONE
  17. MULTIVITAMIN [Concomitant]
  18. NINLARO [Concomitant]
     Active Substance: IXAZOMIB CITRATE
  19. MINERALS [Concomitant]
     Active Substance: MINERALS
  20. OMEGA 3 [Concomitant]
     Active Substance: CAPSAICIN
  21. OMEPRAZOLE [Concomitant]
     Active Substance: OMEPRAZOLE
  22. ONDANSETRON [Concomitant]
     Active Substance: ONDANSETRON
  23. PANTOPRAZOLE [Concomitant]
  24. POMALYST [Concomitant]
     Active Substance: POMALIDOMIDE
  25. PREGNENOLONE [Concomitant]
  26. REVLIMID [Concomitant]
     Active Substance: LENALIDOMIDE
  27. SODIUM CHLORIDE [Concomitant]
     Active Substance: SODIUM CHLORIDE
  28. UBIQUINOL [Concomitant]
     Active Substance: UBIQUINOL
  29. VENCLEXTA [Concomitant]
     Active Substance: VENETOCLAX
  30. VITAMIN B COMPLEX [Concomitant]
     Active Substance: CYANOCOBALAMIN\DEXPANTHENOL\NIACINAMIDE\PYRIDOXINE HYDROCHLORIDE\RIBOFLAVIN 5^-PHOSPHATE SODIUM\THIA
  31. VITAMIN C [Concomitant]
     Active Substance: ASCORBIC ACID
  32. VITAMIN D3 [Concomitant]
     Active Substance: CHOLECALCIFEROL
  33. ZOLEDRONIC ACID [Concomitant]
     Active Substance: ZOLEDRONIC ACID

REACTIONS (1)
  - Hospice care [None]
